FAERS Safety Report 5380107-5 (Version None)
Quarter: 2007Q3

REPORT INFORMATION
  Report Type: 
  Country: None (occurrence: None)
  Receive Date: 20070706
  Receipt Date: 20070618
  Transmission Date: 20080115
  Serious: No
  Sender: FDA-Public Use
  Company Number: A0648568A

PATIENT
  Age: 67 Year
  Sex: Female

DRUGS (10)
  1. TYKERB [Suspect]
     Indication: BREAST CANCER
     Dosage: 1250MG PER DAY
     Route: 048
     Dates: start: 20070413
  2. XELODA [Concomitant]
     Indication: BREAST CANCER
     Route: 048
     Dates: start: 20060901
  3. ZOMETA [Concomitant]
  4. NEXIUM [Concomitant]
  5. CRESTOR [Concomitant]
  6. LEXAPRO [Concomitant]
  7. VITAMIN [Concomitant]
  8. CALCIUM CHLORIDE [Concomitant]
  9. IRON [Concomitant]
  10. ASPIRIN [Concomitant]

REACTIONS (2)
  - CONSTIPATION [None]
  - DIARRHOEA [None]
